FAERS Safety Report 6811038-9 (Version None)
Quarter: 2010Q2

REPORT INFORMATION
  Report Type: 
  Country: None (occurrence: None)
  Receive Date: 20100630
  Receipt Date: 20090128
  Transmission Date: 20101027
  Serious: No
  Sender: FDA-Public Use
  Company Number: US-PFIZER INC-2009162559

PATIENT
  Sex: Female
  Weight: 81.6 kg

DRUGS (3)
  1. ESTRING [Suspect]
     Indication: OESTROGEN REPLACEMENT THERAPY
     Dosage: FREQUENCY: Q3M, EVERY DAY;
  2. LEVOXYL [Concomitant]
  3. LISINOPRIL [Concomitant]

REACTIONS (1)
  - VAGINAL HAEMORRHAGE [None]
